FAERS Safety Report 17362717 (Version 1)
Quarter: 2020Q1

REPORT INFORMATION
  Report Type: Spontaneous
  Country: CA (occurrence: CA)
  Receive Date: 20200203
  Receipt Date: 20200203
  Transmission Date: 20200409
  Serious: Yes (Other)
  Sender: FDA-Public Use
  Company Number: CA-TEVA-2020-CA-1178287

PATIENT
  Sex: Male

DRUGS (1)
  1. CIPROFLOXACIN. [Suspect]
     Active Substance: CIPROFLOXACIN
     Indication: DIVERTICULITIS
     Route: 065

REACTIONS (6)
  - Gait disturbance [Recovered/Resolved]
  - Monoplegia [Recovered/Resolved]
  - Product use in unapproved indication [Recovered/Resolved]
  - Pain in extremity [Recovered/Resolved]
  - Tendonitis [Recovered/Resolved]
  - Off label use [Recovered/Resolved]
